FAERS Safety Report 15293094 (Version 2)
Quarter: 2018Q4

REPORT INFORMATION
  Report Type: Spontaneous
  Country: GB (occurrence: GB)
  Receive Date: 20180820
  Receipt Date: 20181226
  Transmission Date: 20190204
  Serious: Yes (Other)
  Sender: FDA-Public Use
  Company Number: GB-TEVA-2018-GB-943947

PATIENT
  Age: 81 Year
  Sex: Female

DRUGS (5)
  1. ATORVASTATIN [Concomitant]
     Active Substance: ATORVASTATIN
  2. ANASTROZOLE. [Suspect]
     Active Substance: ANASTROZOLE
     Indication: BREAST CANCER
     Route: 065
     Dates: end: 201803
  3. RAMIPRIL. [Concomitant]
     Active Substance: RAMIPRIL
  4. BENDROFLUMETHIAZIDE [Concomitant]
     Active Substance: BENDROFLUMETHIAZIDE
  5. DESLORATADINE. [Concomitant]
     Active Substance: DESLORATADINE

REACTIONS (2)
  - Keratopathy [Not Recovered/Not Resolved]
  - Visual impairment [Recovered/Resolved]
